FAERS Safety Report 8576223-7 (Version None)
Quarter: 2012Q3

REPORT INFORMATION
  Report Type: 
  Country: None (occurrence: None)
  Receive Date: 20120807
  Receipt Date: 20120731
  Transmission Date: 20120928
  Serious: Yes (Other)
  Sender: FDA-Public Use
  Company Number: US-PFIZER INC-2012186457

PATIENT
  Sex: Male

DRUGS (2)
  1. ARMODAFINIL [Suspect]
     Dosage: UNK
  2. XANAX [Suspect]
     Dosage: UNK

REACTIONS (7)
  - MUSCLE SPASMS [None]
  - LOSS OF CONSCIOUSNESS [None]
  - HYPERTENSION [None]
  - FEELING ABNORMAL [None]
  - ASTHENIA [None]
  - PAIN [None]
  - MALAISE [None]
